FAERS Safety Report 17834597 (Version 1)
Quarter: 2020Q2

REPORT INFORMATION
  Report Type: Spontaneous
  Country: US (occurrence: US)
  Receive Date: 20200528
  Receipt Date: 20200528
  Transmission Date: 20200714
  Serious: Yes (Death)
  Sender: FDA-Public Use
  Company Number: None

PATIENT
  Age: 38 Year
  Sex: Female
  Weight: 71.7 kg

DRUGS (17)
  1. REMDESIVIR. [Suspect]
     Active Substance: REMDESIVIR
     Indication: COVID-19
     Route: 040
     Dates: start: 20200516, end: 20200520
  2. ACETAMINOPHEN 650MG TABLET [Concomitant]
     Dates: start: 20200515, end: 20200521
  3. LORAZEPAM 1MG INJ ONCE [Concomitant]
     Dates: start: 20200521, end: 20200521
  4. PROPOFOL INFUSION [Concomitant]
     Active Substance: PROPOFOL
     Dates: start: 20200521, end: 20200521
  5. INSULIN LISPRO SLIDING SCALE [Concomitant]
     Dates: start: 20200513, end: 20200521
  6. POTASSIUM CHLORIDE 40MEQ DAILY [Concomitant]
     Dates: start: 20200516, end: 20200521
  7. CEFEPIME 2G IVPB [Concomitant]
     Dates: start: 20200515, end: 20200521
  8. ETOMIDATE 20MG ONCE [Concomitant]
     Dates: start: 20200521, end: 20200521
  9. MAGNESIUM OXIDE 400MG BID [Concomitant]
     Dates: start: 20200516, end: 20200520
  10. FENTANYL 100MCG ONCE [Concomitant]
     Dates: start: 20200521, end: 20200521
  11. INSULIN GLARGINE 5 UNITS BID [Concomitant]
     Dates: start: 20200520, end: 20200521
  12. DEXMEDETOMIDINE 1.4MG/KG/HR INFUSION [Concomitant]
     Dates: start: 20200521, end: 20200521
  13. ENOXAPARIN 40MG BID [Concomitant]
     Dates: start: 20200516, end: 20200521
  14. INSULIN REGULAR SLIDING SCALE [Concomitant]
     Dates: start: 20200521, end: 20200521
  15. MIDAZOLAM 5MG INJ ONCE [Concomitant]
     Dates: start: 20200521, end: 20200521
  16. ROCURONIUM INFUSION [Concomitant]
     Dates: start: 20200521, end: 20200521
  17. VANCOMYCIN 1250MG Q6H [Concomitant]
     Dates: start: 20200516, end: 20200521

REACTIONS (5)
  - Condition aggravated [None]
  - Bradycardia [None]
  - Hypotension [None]
  - Inflammatory marker increased [None]
  - Ventricular fibrillation [None]

NARRATIVE: CASE EVENT DATE: 20200521
